FAERS Safety Report 21372901 (Version 6)
Quarter: 2023Q1

REPORT INFORMATION
  Report Type: Report from Study
  Country: IL (occurrence: IL)
  Receive Date: 20220924
  Receipt Date: 20230125
  Transmission Date: 20230417
  Serious: Yes (Hospitalization)
  Sender: FDA-Public Use
  Company Number: IL-ABBVIE-4129239

PATIENT
  Age: 72 Year
  Sex: Male

DRUGS (3)
  1. CARBIDOPA\LEVODOPA [Suspect]
     Active Substance: CARBIDOPA\LEVODOPA
     Indication: Parkinson^s disease
     Dosage: MORNING DOSE AND CONTINUOUS DOSE WERE INCREASED?THERAPY DURATION (HRS)  REMAINS AT 16
     Route: 050
     Dates: start: 202301
  2. CARBIDOPA\LEVODOPA [Suspect]
     Active Substance: CARBIDOPA\LEVODOPA
     Dosage: THERAPY DURATION (HRS)  REMAINS AT 16
     Route: 050
     Dates: start: 20180707
  3. CARBIDOPA\LEVODOPA [Suspect]
     Active Substance: CARBIDOPA\LEVODOPA
     Dosage: MORNING DOSAGE(ML) 13.0, CONTINUOUS DOSAGE (ML/H) 4.1, EXTRA DOSAGE (ML) 1.5
     Route: 050
     Dates: start: 20221224, end: 202301

REACTIONS (3)
  - Hand fracture [Recovering/Resolving]
  - Fall [Recovering/Resolving]
  - On and off phenomenon [Unknown]

NARRATIVE: CASE EVENT DATE: 20220901
